FAERS Safety Report 7571770-9 (Version None)
Quarter: 2011Q2

REPORT INFORMATION
  Report Type: 
  Country: None (occurrence: None)
  Receive Date: 20110624
  Receipt Date: 20110621
  Transmission Date: 20111010
  Serious: Yes (Other)
  Sender: FDA-Public Use
  Company Number: EC-PFIZER INC-2011138778

PATIENT
  Sex: Female

DRUGS (4)
  1. CYMBALTA [Concomitant]
     Dosage: UNK
     Route: 048
  2. VARENICLINE TARTRATE [Suspect]
     Indication: SMOKING CESSATION THERAPY
     Dosage: UNK
     Route: 048
     Dates: start: 20110501
  3. TRAMADOL HCL [Concomitant]
     Dosage: UNK
     Route: 048
  4. LEXOTAN [Concomitant]
     Dosage: UNK
     Route: 048

REACTIONS (2)
  - HEADACHE [None]
  - FIBROMYALGIA [None]
